FAERS Safety Report 9067763 (Version 4)
Quarter: 2013Q2

REPORT INFORMATION
  Report Type: Report from Study
  Country: MX (occurrence: MX)
  Receive Date: 20130206
  Receipt Date: 20130619
  Transmission Date: 20140414
  Serious: Yes (Other)
  Sender: FDA-Public Use
  Company Number: PHHY2013MX011309

PATIENT
  Age: 15 Year
  Sex: Male

DRUGS (3)
  1. TRILEPTAL [Suspect]
     Indication: EPILEPSY
     Dosage: 1 DF, QD
     Route: 048
     Dates: start: 201206, end: 201211
  2. TRILEPTAL [Suspect]
     Dosage: 0.5 DF, QD
     Route: 048
     Dates: start: 201211, end: 201301
  3. CARBAMAZEPINE [Concomitant]
     Indication: EPILEPSY
     Dosage: 1 DF, QD
     Route: 048
     Dates: start: 2006

REACTIONS (7)
  - Suicide attempt [Recovered/Resolved]
  - Headache [Recovered/Resolved]
  - Somnolence [Recovered/Resolved]
  - Impulsive behaviour [Recovered/Resolved]
  - Depression [Unknown]
  - Epilepsy [Recovered/Resolved]
  - Weight increased [Recovered/Resolved]
